FAERS Safety Report 10271128 (Version 3)
Quarter: 2014Q3

REPORT INFORMATION
  Report Type: Spontaneous
  Country: FR (occurrence: FR)
  Receive Date: 20140701
  Receipt Date: 20140725
  Transmission Date: 20150326
  Serious: Yes (Death, Hospitalization, Other)
  Sender: FDA-Public Use
  Company Number: FR-PFIZER INC-2014174061

PATIENT
  Age: 52 Year
  Sex: Male
  Weight: 85 kg

DRUGS (1)
  1. SUTENT [Suspect]
     Active Substance: SUNITINIB MALATE
     Indication: RENAL CANCER STAGE IV
     Dosage: 50 MG, UNK
     Dates: start: 20140408, end: 20140518

REACTIONS (10)
  - Mucosal inflammation [Recovering/Resolving]
  - Hyperkalaemia [Unknown]
  - Renal failure acute [Fatal]
  - Yellow skin [Not Recovered/Not Resolved]
  - Pancytopenia [Fatal]
  - Weight decreased [Unknown]
  - Decreased appetite [Unknown]
  - Pneumonia pneumococcal [Fatal]
  - Septic shock [Fatal]
  - Hepatocellular injury [Fatal]

NARRATIVE: CASE EVENT DATE: 2014
